FAERS Safety Report 4997437-9 (Version None)
Quarter: 2006Q2

REPORT INFORMATION
  Report Type: 
  Country: None (occurrence: None)
  Receive Date: 20060509
  Receipt Date: 20060126
  Transmission Date: 20061013
  Serious: Yes (Hospitalization)
  Sender: FDA-Public Use
  Company Number: US-MERCK-0601USA03609

PATIENT
  Age: 71 Year
  Sex: Male
  Weight: 73 kg

DRUGS (8)
  1. VIOXX [Suspect]
     Indication: BACK PAIN
     Route: 048
     Dates: start: 20001101, end: 20040901
  2. HYDROCODONE BITARTRATE + ACETAMINOPHEN [Concomitant]
     Route: 065
  3. AMOXICILLIN [Concomitant]
     Route: 065
  4. ANUCORT [Concomitant]
     Route: 065
  5. CEPHALEXIN [Concomitant]
     Route: 065
  6. PREVIDENT 5000 PLUS [Concomitant]
     Route: 065
  7. QUININE SULFATE [Concomitant]
     Route: 065
  8. PRAVACHOL [Concomitant]
     Route: 065
     Dates: start: 19991015, end: 20040612

REACTIONS (18)
  - AORTIC VALVE INCOMPETENCE [None]
  - AORTIC VALVE SCLEROSIS [None]
  - ATRIAL FIBRILLATION [None]
  - BACK DISORDER [None]
  - BLOOD CHOLESTEROL INCREASED [None]
  - BUNDLE BRANCH BLOCK RIGHT [None]
  - CEREBRAL INFARCTION [None]
  - CEREBROVASCULAR ACCIDENT [None]
  - ELECTROCARDIOGRAM T WAVE INVERSION [None]
  - FAECAL INCONTINENCE [None]
  - FALL [None]
  - HYPERTENSION [None]
  - ISCHAEMIC CARDIOMYOPATHY [None]
  - MITRAL VALVE DISEASE [None]
  - SURGERY [None]
  - SYNCOPE [None]
  - TRICUSPID VALVE INCOMPETENCE [None]
  - VERTEBRAL ARTERY STENOSIS [None]
